FAERS Safety Report 24416611 (Version 1)
Quarter: 2024Q4

REPORT INFORMATION
  Report Type: Spontaneous
  Country: US (occurrence: None)
  Receive Date: 20241008
  Receipt Date: 20241008
  Transmission Date: 20250114
  Serious: Yes (unspecified)
  Sender: Public
  Company Number: None

PATIENT
  Age: 53 Year
  Sex: Female
  Weight: 110.7 kg

DRUGS (7)
  1. WEGOVY [Suspect]
     Active Substance: SEMAGLUTIDE
     Indication: Weight decreased
     Dosage: OTHER QUANTITY : 4 INJECTION(S);?OTHER FREQUENCY : ONCE EVERY SEVEN D;?OTHER ROUTE : INJECT UMDER SK
     Route: 050
     Dates: start: 20240505, end: 20240526
  2. lisinopril-hydrocholothiazide [Concomitant]
  3. ALLEGRA [Concomitant]
     Active Substance: FEXOFENADINE HYDROCHLORIDE
  4. multivitamin/mineral [Concomitant]
  5. QUERCETIN [Concomitant]
  6. CHROMIUM PICOLINATE [Concomitant]
  7. NASALCROM [Concomitant]
     Active Substance: CROMOLYN SODIUM

REACTIONS (4)
  - Product availability issue [None]
  - Impaired gastric emptying [None]
  - Abdominal pain upper [None]
  - Abdominal discomfort [None]

NARRATIVE: CASE EVENT DATE: 20240602
